FAERS Safety Report 4285233-X (Version None)
Quarter: 2004Q1

REPORT INFORMATION
  Report Type: 
  Country: None (occurrence: None)
  Receive Date: 20040202
  Receipt Date: 20040120
  Transmission Date: 20041129
  Serious: Yes (Death)
  Sender: FDA-Public Use
  Company Number: 04H-163-0247879-00

PATIENT

DRUGS (4)
  1. HEPARIN SODIUM [Suspect]
     Indication: ANTICOAGULANT THERAPY
     Dosage: 65 UG/KG , INTRAVENOUS BOLUS
     Route: 040
  2. ABCIXIMAB [Suspect]
     Indication: ANTICOAGULANT THERAPY
     Dosage: 0.25 MG/KG, INTRAVENOUS BOLUS ; 0.125 UG/KG/MIN INTRAVENOUS
     Route: 040
  3. EPTIFIBATIDE [Suspect]
     Indication: ANTICOAGULANT THERAPY
     Dosage: 180 UG/KG, TWICE, INTRAVENOUS BOLUS : 2 MCG/KG/MIN, INTRAVENOUS
     Route: 040
  4. ACETYLSALICYLIC ACID SRT [Concomitant]

REACTIONS (1)
  - DEATH [None]
